FAERS Safety Report 20156673 (Version 2)
Quarter: 2022Q1

REPORT INFORMATION
  Report Type: Report from Study
  Country: US (occurrence: US)
  Receive Date: 20211207
  Receipt Date: 20220106
  Transmission Date: 20220424
  Serious: Yes (Hospitalization)
  Sender: FDA-Public Use
  Company Number: US-BAYER-2021A258929

PATIENT
  Age: 61 Year
  Sex: Female

DRUGS (2)
  1. KERENDIA [Suspect]
     Active Substance: FINERENONE
     Indication: Renal disorder
  2. BYDUREON BCISE [Concomitant]
     Active Substance: EXENATIDE

REACTIONS (5)
  - Cardiac failure congestive [Unknown]
  - Renal failure [Unknown]
  - Oedema [Unknown]
  - Dyspnoea [None]
  - Weight increased [None]
